FAERS Safety Report 24423273 (Version 1)
Quarter: 2024Q4

REPORT INFORMATION
  Report Type: Spontaneous
  Country: US (occurrence: None)
  Receive Date: 20241010
  Receipt Date: 20241010
  Transmission Date: 20250115
  Serious: Yes (Other)
  Sender: Public
  Company Number: None

PATIENT
  Age: 60 Year
  Sex: Male

DRUGS (8)
  1. TREMFYA [Suspect]
     Active Substance: GUSELKUMAB
     Indication: Rheumatoid arthritis
     Dosage: OTHER FREQUENCY : ONCE EVERY 8 WEEKS;?FREQ: INJECT 100 MG INTO THE SKIN ONCE EVERY 8 WEEKS?
     Route: 058
     Dates: start: 20240326
  2. ACETAMINOPHEN\HYDROCODONE [Concomitant]
     Active Substance: ACETAMINOPHEN\HYDROCODONE
  3. LISINOPRIL [Concomitant]
     Active Substance: LISINOPRIL
  4. MELOXICAM [Concomitant]
  5. PRAVASTATIN [Concomitant]
     Active Substance: PRAVASTATIN
  6. TALTZ [Concomitant]
     Active Substance: IXEKIZUMAB
  7. TRAMADL/APAP [Concomitant]
  8. TRAMADOL [Concomitant]
     Active Substance: TRAMADOL

REACTIONS (2)
  - Surgery [None]
  - Therapy interrupted [None]

NARRATIVE: CASE EVENT DATE: 20241008
